FAERS Safety Report 8533154-6 (Version None)
Quarter: 2012Q3

REPORT INFORMATION
  Report Type: 
  Country: None (occurrence: None)
  Receive Date: 20120724
  Receipt Date: 20120712
  Transmission Date: 20120928
  Serious: Yes (Hospitalization)
  Sender: FDA-Public Use
  Company Number: JP-NAPPMUNDI-MAG-2012-0002199

PATIENT
  Age: 86 Year
  Sex: Male

DRUGS (5)
  1. BUPRENORPHINE [Suspect]
     Dosage: 10 MCG, Q1H
     Route: 062
     Dates: start: 20120331, end: 20120427
  2. BUPRENORPHINE [Suspect]
     Dosage: 20 MCG, Q1H
     Route: 062
     Dates: start: 20120218, end: 20120330
  3. BUPRENORPHINE [Suspect]
     Dosage: 10 MCG, Q1H
     Route: 062
     Dates: start: 20111203, end: 20120217
  4. BUPRENORPHINE [Suspect]
     Dosage: 5 MCG, Q1H
     Route: 062
     Dates: start: 20111112, end: 20111202
  5. BUPRENORPHINE [Suspect]
     Indication: PRODUCT USED FOR UNKNOWN INDICATION
     Dosage: 5 MCG, Q1H
     Route: 062
     Dates: start: 20120428, end: 20120428

REACTIONS (2)
  - PNEUMONIA [None]
  - DIZZINESS [None]
